FAERS Safety Report 4734573-6 (Version None)
Quarter: 2005Q3

REPORT INFORMATION
  Report Type: 
  Country: None (occurrence: None)
  Receive Date: 20050729
  Receipt Date: 20050719
  Transmission Date: 20060218
  Serious: Yes (Hospitalization, Disabling, Other)
  Sender: FDA-Public Use
  Company Number: HQWYE298920JUL05

PATIENT
  Sex: Female

DRUGS (1)
  1. PREMPHASE 14/14 [Suspect]
     Indication: HORMONE REPLACEMENT THERAPY

REACTIONS (8)
  - ATROPHY [None]
  - CEREBRAL ARTERY OCCLUSION [None]
  - CONVULSION [None]
  - HEMIPARESIS [None]
  - PARALYSIS [None]
  - PNEUMONIA [None]
  - SPEECH DISORDER [None]
  - VISUAL ACUITY REDUCED [None]
